FAERS Safety Report 17518553 (Version 1)
Quarter: 2020Q1

REPORT INFORMATION
  Report Type: Report from Study
  Country: US (occurrence: US)
  Receive Date: 20200310
  Receipt Date: 20200310
  Transmission Date: 20200409
  Serious: Yes (Hospitalization)
  Sender: FDA-Public Use
  Company Number: US-BEH-2020113922

PATIENT
  Age: 78 Year
  Sex: Female
  Weight: 45.81 kg

DRUGS (1)
  1. ZEMAIRA [Suspect]
     Active Substance: .ALPHA.1-PROTEINASE INHIBITOR HUMAN
     Indication: ALPHA-1 ANTI-TRYPSIN DEFICIENCY
     Route: 042

REACTIONS (4)
  - Fall [Unknown]
  - Dizziness [Unknown]
  - Limb injury [Unknown]
  - Infection [Unknown]

NARRATIVE: CASE EVENT DATE: 20200216
